FAERS Safety Report 19140159 (Version 1)
Quarter: 2021Q2

REPORT INFORMATION
  Report Type: Spontaneous
  Country: US (occurrence: US)
  Receive Date: 20210415
  Receipt Date: 20210415
  Transmission Date: 20210717
  Serious: Yes (Hospitalization)
  Sender: FDA-Public Use
  Company Number: None

PATIENT
  Age: 77 Year
  Sex: Male
  Weight: 94.5 kg

DRUGS (12)
  1. EYLEA [Suspect]
     Active Substance: AFLIBERCEPT
     Indication: RETINOPATHY
  2. MODERNA COVID?19 VACCINE [Suspect]
     Active Substance: CX-024414
  3. LISINOPRIL. [Concomitant]
     Active Substance: LISINOPRIL
  4. APIXABAN 5MG [Concomitant]
     Active Substance: APIXABAN
  5. CO ENZYME Q10 200MG [Concomitant]
  6. AREDS 2 MULTIVITAMIN [Concomitant]
  7. MULTIVITAMIN [Concomitant]
     Active Substance: VITAMINS
  8. VITAMIN E [Concomitant]
     Active Substance: .ALPHA.-TOCOPHEROL
  9. ATORVASTATIN 40MG [Concomitant]
     Active Substance: ATORVASTATIN
  10. METOPROLOL TARTRATE 100MG [Concomitant]
     Active Substance: METOPROLOL TARTRATE
  11. GLUCOSAMINE CHONDROITIN MSM [Concomitant]
  12. FISH OIL [Concomitant]
     Active Substance: FISH OIL

REACTIONS (3)
  - Ophthalmic migraine [None]
  - Cataract [None]
  - Eye infarction [None]

NARRATIVE: CASE EVENT DATE: 20210320
